FAERS Safety Report 12977386 (Version 1)
Quarter: 2016Q4

REPORT INFORMATION
  Report Type: Report from Study
  Country: US (occurrence: US)
  Receive Date: 20161128
  Receipt Date: 20161128
  Transmission Date: 20170207
  Serious: Yes (Other)
  Sender: FDA-Public Use
  Company Number: US-AMGEN-USASL2016165873

PATIENT
  Age: 76 Year
  Sex: Female

DRUGS (1)
  1. ENBREL [Suspect]
     Active Substance: ETANERCEPT
     Indication: RHEUMATOID ARTHRITIS
     Dosage: 50 MG, QWK
     Route: 065

REACTIONS (12)
  - Nasopharyngitis [Unknown]
  - Decreased appetite [Unknown]
  - Hypersensitivity [Unknown]
  - Finger deformity [Unknown]
  - Lower respiratory tract infection [Unknown]
  - Diarrhoea [Unknown]
  - Oesophagitis [Unknown]
  - Arthritis [Unknown]
  - Back pain [Unknown]
  - Sinusitis [Unknown]
  - Gastritis [Unknown]
  - Anaemia [Unknown]
